FAERS Safety Report 9462469 (Version 2)
Quarter: 2013Q3

REPORT INFORMATION
  Report Type: Spontaneous
  Country: NL (occurrence: NL)
  Receive Date: 20130816
  Receipt Date: 20130911
  Transmission Date: 20140515
  Serious: Yes (Other)
  Sender: FDA-Public Use
  Company Number: NL-LUNDBECK-DKLU1093015

PATIENT
  Sex: Male

DRUGS (2)
  1. ONFI [Suspect]
     Indication: EPILEPSY
     Route: 048
     Dates: start: 2012
  2. DEPAKENE [Suspect]
     Indication: EPILEPSY
     Dosage: 40 MG/ML
     Route: 048

REACTIONS (2)
  - Apnoea [Not Recovered/Not Resolved]
  - Sedation [Not Recovered/Not Resolved]
